FAERS Safety Report 9197200 (Version 2)
Quarter: 2013Q2

REPORT INFORMATION
  Report Type: Report from Study
  Country: JP (occurrence: JP)
  Receive Date: 20130328
  Receipt Date: 20130505
  Transmission Date: 20140414
  Serious: Yes (Other)
  Sender: FDA-Public Use
  Company Number: JP-ROCHE-1207535

PATIENT
  Sex: Male

DRUGS (7)
  1. RANIBIZUMAB [Suspect]
     Indication: AGE-RELATED MACULAR DEGENERATION
     Route: 050
     Dates: start: 20090324
  2. RANIBIZUMAB [Suspect]
     Route: 050
     Dates: start: 20090428
  3. RANIBIZUMAB [Suspect]
     Route: 050
     Dates: start: 20090528
  4. RANIBIZUMAB [Suspect]
     Route: 050
  5. AVASTIN [Suspect]
     Indication: AGE-RELATED MACULAR DEGENERATION
     Route: 065
  6. VIGAMOX [Concomitant]
     Route: 065
     Dates: start: 200903, end: 200905
  7. FLOMOX [Concomitant]

REACTIONS (1)
  - Retinal haemorrhage [Unknown]
